FAERS Safety Report 8341465-2 (Version None)
Quarter: 2012Q2

REPORT INFORMATION
  Report Type: 
  Country: None (occurrence: None)
  Receive Date: 20120502
  Receipt Date: 20120419
  Transmission Date: 20120825
  Serious: Yes (Hospitalization)
  Sender: FDA-Public Use
  Company Number: 2012-1851

PATIENT
  Sex: Female

DRUGS (2)
  1. DYSPORT [Suspect]
     Indication: DYSTONIA
     Dosage: 1500 UNITS (1500 UNITS, SINGLE CYCLE), PARENTERAL
     Route: 051
  2. DYSPORT [Suspect]
     Indication: OFF LABEL USE
     Dosage: 1500 UNITS (1500 UNITS, SINGLE CYCLE), PARENTERAL
     Route: 051

REACTIONS (2)
  - STRIDOR [None]
  - DYSPHAGIA [None]
